FAERS Safety Report 14326550 (Version 1)
Quarter: 2017Q4

REPORT INFORMATION
  Report Type: Report from Study
  Country: CN (occurrence: CN)
  Receive Date: 20171227
  Receipt Date: 20171227
  Transmission Date: 20180321
  Serious: Yes (Other)
  Sender: FDA-Public Use
  Company Number: CN-ROCHE-2041944

PATIENT

DRUGS (6)
  1. FLUOROURACIL. [Suspect]
     Active Substance: FLUOROURACIL
     Indication: GASTRIC CANCER
     Dosage: INTRAVENOUS INJECTION
     Route: 042
  2. IRINOTECAN [Suspect]
     Active Substance: IRINOTECAN
     Indication: GASTRIC CANCER
     Dosage: ON DAY1, 1 HOUR
     Route: 041
  3. TROPISETRON [Concomitant]
     Active Substance: TROPISETRON
     Dosage: INTRAVENOUS INJECTION BEFORE CHEMOTHERAPY 30MIN
     Route: 042
  4. TRASTUZUMAB. [Suspect]
     Active Substance: TRASTUZUMAB
     Indication: GASTRIC CANCER
     Dosage: 4MG/KG ON THE FIRST WEEK,THEN 2MG/KG
     Route: 041
  5. CALCIUM FOLINATE [Suspect]
     Active Substance: LEUCOVORIN CALCIUM
     Indication: GASTRIC CANCER
     Dosage: ON DAY1 AND DAY2, 2 HOURS
     Route: 041
  6. FLUOROURACIL. [Suspect]
     Active Substance: FLUOROURACIL
     Dosage: CONTINUOUS INTRAVENOUS INFUSION ON DAY1-2, 22HOURS
     Route: 042

REACTIONS (7)
  - Vomiting [Unknown]
  - Hepatic function abnormal [Unknown]
  - Nausea [Unknown]
  - Rash [Unknown]
  - Leukopenia [Unknown]
  - Diarrhoea [Unknown]
  - Bone marrow failure [Unknown]
